FAERS Safety Report 22331072 (Version 2)
Quarter: 2023Q2

REPORT INFORMATION
  Report Type: Other
  Country: GB (occurrence: None)
  Receive Date: 20230517
  Receipt Date: 20230522
  Transmission Date: 20230721
  Serious: Yes (Other)
  Sender: FDA-Public Use
  Company Number: GB-ROCHE-3120785

PATIENT
  Age: 81 Year
  Sex: Male

DRUGS (1)
  1. ESBRIET [Suspect]
     Active Substance: PIRFENIDONE
     Indication: Idiopathic pulmonary fibrosis
     Dosage: 2 TABLETS THREE TIMES A DAY
     Route: 048
     Dates: start: 20210927

REACTIONS (3)
  - Therapy change [Unknown]
  - Decreased appetite [Unknown]
  - Parkinson^s disease [Unknown]

NARRATIVE: CASE EVENT DATE: 20220616
